FAERS Safety Report 7637902-9 (Version None)
Quarter: 2011Q3

REPORT INFORMATION
  Report Type: 
  Country: None (occurrence: None)
  Receive Date: 20110722
  Receipt Date: 20110722
  Transmission Date: 20111222
  Serious: No
  Sender: FDA-Public Use
  Company Number: None

PATIENT
  Age: 61 Year
  Sex: Male
  Weight: 135 kg

DRUGS (1)
  1. DRONEDARONE HCL [Suspect]
     Indication: ATRIAL FIBRILLATION
     Dosage: 400 MG BID PO
     Route: 048
     Dates: start: 20110411, end: 20110422

REACTIONS (11)
  - INCREASED UPPER AIRWAY SECRETION [None]
  - TACHYPNOEA [None]
  - DYSPNOEA EXERTIONAL [None]
  - WEIGHT INCREASED [None]
  - DIZZINESS [None]
  - OEDEMA PERIPHERAL [None]
  - FATIGUE [None]
  - COUGH [None]
  - WHEEZING [None]
  - ASTHENIA [None]
  - PRESYNCOPE [None]
